FAERS Safety Report 4765633-1 (Version None)
Quarter: 2005Q3

REPORT INFORMATION
  Report Type: 
  Country: None (occurrence: None)
  Receive Date: 20050912
  Receipt Date: 20050317
  Transmission Date: 20060218
  Serious: Yes (Hospitalization)
  Sender: FDA-Public Use
  Company Number: PHHO2005JP04754

PATIENT
  Age: 65 Year
  Sex: Male
  Weight: 66 kg

DRUGS (3)
  1. DIOVAN [Suspect]
     Indication: HYPERTENSION
     Dosage: 80 MG, QD
     Route: 048
     Dates: start: 20021203
  2. JUVELA [Concomitant]
     Dosage: 600 MG, UNK
     Route: 048
     Dates: start: 20021203, end: 20030130
  3. SELBEX [Concomitant]
     Dosage: 1.5 G, UNK
     Route: 048
     Dates: start: 20021203

REACTIONS (7)
  - ANGINA PECTORIS [None]
  - BACK PAIN [None]
  - CHEST DISCOMFORT [None]
  - DIZZINESS [None]
  - INFARCTION [None]
  - NAUSEA [None]
  - VISION BLURRED [None]
